FAERS Safety Report 8573232-9 (Version None)
Quarter: 2012Q3

REPORT INFORMATION
  Report Type: 
  Country: None (occurrence: None)
  Receive Date: 20120806
  Receipt Date: 20120731
  Transmission Date: 20120928
  Serious: Yes (Death, Other)
  Sender: FDA-Public Use
  Company Number: US-PFIZER INC-2012106276

PATIENT
  Age: 81 Year
  Sex: Male
  Weight: 86.168 kg

DRUGS (1)
  1. REVATIO [Suspect]
     Indication: PULMONARY HYPERTENSION
     Dosage: 40 MG, 3X/DAY
     Route: 048
     Dates: start: 20100101

REACTIONS (2)
  - UPPER GASTROINTESTINAL HAEMORRHAGE [None]
  - CARDIAC FAILURE CONGESTIVE [None]
